FAERS Safety Report 21492293 (Version 1)
Quarter: 2022Q4

REPORT INFORMATION
  Report Type: Spontaneous
  Country: US (occurrence: None)
  Receive Date: 20221020
  Receipt Date: 20221020
  Transmission Date: 20230113
  Serious: Yes (Other)
  Sender: FDA-Public Use
  Company Number: None

PATIENT
  Age: 26 Year
  Sex: Female
  Weight: 78.75 kg

DRUGS (3)
  1. DEXTROAMPHET SACCHARAT, AMPHET ASPARTATE, DEXTROAMPHET SULFATE AND AMP [Suspect]
     Active Substance: AMPHETAMINE ASPARTATE\AMPHETAMINE SULFATE\DEXTROAMPHETAMINE SACCHARATE\DEXTROAMPHETAMINE SULFATE
     Indication: Attention deficit hyperactivity disorder
     Dosage: OTHER QUANTITY : 1 TABLET(S);?FREQUENCY : TWICE A DAY;?
     Route: 048
     Dates: start: 20221016, end: 20221020
  2. LAMOTRIGINE [Concomitant]
     Active Substance: LAMOTRIGINE
  3. Omega 3 vitamins [Concomitant]

REACTIONS (13)
  - Product substitution issue [None]
  - Tremor [None]
  - Headache [None]
  - Nausea [None]
  - Flushing [None]
  - Feeling abnormal [None]
  - Impaired work ability [None]
  - Dizziness [None]
  - Dysstasia [None]
  - Therapy non-responder [None]
  - Fatigue [None]
  - Decreased activity [None]
  - Illness [None]

NARRATIVE: CASE EVENT DATE: 20221016
